FAERS Safety Report 7672890-0 (Version None)
Quarter: 2011Q3

REPORT INFORMATION
  Report Type: 
  Country: None (occurrence: None)
  Receive Date: 20110809
  Receipt Date: 20110805
  Transmission Date: 20111222
  Serious: No
  Sender: FDA-Public Use
  Company Number: US-TEVA-295238USA

PATIENT
  Sex: Female
  Weight: 44.492 kg

DRUGS (1)
  1. PROAIR HFA [Suspect]
     Dosage: 90 MICROGRAM;
     Route: 055
     Dates: start: 20110623, end: 20110623

REACTIONS (4)
  - DYSPNOEA [None]
  - GAIT DISTURBANCE [None]
  - CANDIDIASIS [None]
  - INCONTINENCE [None]
